FAERS Safety Report 21668250 (Version 1)
Quarter: 2022Q4

REPORT INFORMATION
  Report Type: Spontaneous
  Country: GB (occurrence: None)
  Receive Date: 20221201
  Receipt Date: 20221201
  Transmission Date: 20230112
  Serious: Yes (Hospitalization, Other)
  Sender: FDA-Public Use
  Company Number: 2022A385772

PATIENT
  Age: 50 Year
  Sex: Female

DRUGS (8)
  1. DAPAGLIFLOZIN [Suspect]
     Active Substance: DAPAGLIFLOZIN
     Indication: Diabetes mellitus
     Dosage: 10MG DAILY
     Route: 065
     Dates: start: 20221109, end: 20221109
  2. ATORVASTATIN [Concomitant]
     Active Substance: ATORVASTATIN
  3. DULOXETINE [Concomitant]
     Active Substance: DULOXETINE
  4. GABAPENTIN [Concomitant]
     Active Substance: GABAPENTIN
  5. LINAGLIPTIN [Concomitant]
     Active Substance: LINAGLIPTIN
  6. OMEPRAZOLE [Concomitant]
     Active Substance: OMEPRAZOLE
  7. PROPRANOLOL [Concomitant]
     Active Substance: PROPRANOLOL HYDROCHLORIDE
  8. TRANEXAMIC ACID [Concomitant]
     Active Substance: TRANEXAMIC ACID

REACTIONS (1)
  - Vomiting [Recovering/Resolving]

NARRATIVE: CASE EVENT DATE: 20221109
